FAERS Safety Report 16863926 (Version 1)
Quarter: 2019Q3

REPORT INFORMATION
  Report Type: Spontaneous
  Country: RU (occurrence: RU)
  Receive Date: 20190927
  Receipt Date: 20190927
  Transmission Date: 20191005
  Serious: Yes (Other)
  Sender: FDA-Public Use
  Company Number: RU-BAYER-2019-111951

PATIENT
  Age: 26 Year
  Sex: Female

DRUGS (1)
  1. SORAFENIB (RAF KINASE INHIBITOR) [Suspect]
     Active Substance: SORAFENIB
     Indication: OVARIAN GRANULOSA CELL TUMOUR
     Dosage: DAILY DOSE 400 MG
     Dates: start: 201510, end: 2015

REACTIONS (4)
  - Off label use [None]
  - Polyarthritis [None]
  - Drug intolerance [None]
  - Product use in unapproved indication [None]

NARRATIVE: CASE EVENT DATE: 201510
